FAERS Safety Report 10774974 (Version 3)
Quarter: 2015Q1

REPORT INFORMATION
  Report Type: Spontaneous
  Country: DE (occurrence: DE)
  Receive Date: 20150209
  Receipt Date: 20150330
  Transmission Date: 20150721
  Serious: Yes (Death, Life-Threatening, Other)
  Sender: FDA-Public Use
  Company Number: DE-JNJFOC-20150204325

PATIENT
  Age: 76 Year
  Sex: Male

DRUGS (10)
  1. L-THYROXIN [Concomitant]
     Active Substance: LEVOTHYROXINE SODIUM
  2. CANDESARTAN [Concomitant]
     Active Substance: CANDESARTAN
  3. ASPIRIN. [Concomitant]
     Active Substance: ASPIRIN
  4. METOPROLOL [Concomitant]
     Active Substance: METOPROLOL
  5. TORASEMIDE [Concomitant]
     Active Substance: TORSEMIDE
  6. ULTIBRO [Concomitant]
     Active Substance: GLYCOPYRRONIUM\INDACATEROL
  7. DOXAZOSIN [Concomitant]
     Active Substance: DOXAZOSIN\DOXAZOSIN MESYLATE
  8. IMBRUVICA [Suspect]
     Active Substance: IBRUTINIB
     Indication: CHRONIC LYMPHOCYTIC LEUKAEMIA
     Route: 048
     Dates: start: 20140613
  9. VFEND [Concomitant]
     Active Substance: VORICONAZOLE
  10. APIDRA [Concomitant]
     Active Substance: INSULIN GLULISINE

REACTIONS (5)
  - Lymphadenectomy [Unknown]
  - Pneumonia [Fatal]
  - Haemorrhagic diathesis [Unknown]
  - Post procedural haematoma [Unknown]
  - Infection [Fatal]

NARRATIVE: CASE EVENT DATE: 201412
